FAERS Safety Report 8561856-4 (Version None)
Quarter: 2012Q3

REPORT INFORMATION
  Report Type: 
  Country: None (occurrence: None)
  Receive Date: 20120802
  Receipt Date: 20120710
  Transmission Date: 20120928
  Serious: No
  Sender: FDA-Public Use
  Company Number: US-AMGEN-USASP2012015137

PATIENT
  Age: 57 Year
  Sex: Female

DRUGS (1)
  1. ENBREL [Suspect]
     Indication: RHEUMATOID ARTHRITIS
     Dosage: 50 MG, QWK
     Dates: start: 20120202

REACTIONS (8)
  - CATARACT [None]
  - GASTROOESOPHAGEAL REFLUX DISEASE [None]
  - VEIN DISCOLOURATION [None]
  - CHOKING [None]
  - DYSPHONIA [None]
  - ERYTHEMA [None]
  - CARPAL TUNNEL SYNDROME [None]
  - VISION BLURRED [None]
